FAERS Safety Report 24339458 (Version 6)
Quarter: 2025Q4

REPORT INFORMATION
  Report Type: Spontaneous
  Country: CA (occurrence: CA)
  Receive Date: 20240919
  Receipt Date: 20251029
  Transmission Date: 20260117
  Serious: Yes (Other)
  Sender: ANI
  Company Number: CA-ANIPHARMA-2024-CA-004035

PATIENT
  Age: 53 Year
  Sex: Male

DRUGS (41)
  1. CANDESARTAN [Suspect]
     Active Substance: CANDESARTAN
     Indication: Product used for unknown indication
     Route: 048
  2. AZD-1222 [Suspect]
     Active Substance: AZD-1222
  3. WARFARIN [Suspect]
     Active Substance: WARFARIN
     Dosage: 8 DOSAGE FORM, Q8WEEKS; 1 DOSAGE FORM, QD;
     Dates: start: 2009
  4. CORTIFOAM [Suspect]
     Active Substance: HYDROCORTISONE ACETATE
  5. ADALIMUMAB [Suspect]
     Active Substance: ADALIMUMAB
     Dates: start: 2009
  6. PREDNISONE [Suspect]
     Active Substance: PREDNISONE
     Dosage: 50 MILLIGRAM, QD; 40 MILLIGRAM, QD; 50 MILLIGRAM;
     Dates: start: 2009
  7. ASPIRIN [Suspect]
     Active Substance: ASPIRIN
  8. HYDROCORTISONE [Suspect]
     Active Substance: HYDROCORTISONE
     Dosage: 3 DOSAGE FORM, BID; 8 DOSAGE FORM, Q8WEEKS; 1 DOSAGE FORM, QD; 8 DOSAGE FORM, Q8WEEKS; 4 DOSAGE FORM
     Dates: start: 2016
  9. VEDOLIZUMAB [Suspect]
     Active Substance: VEDOLIZUMAB
     Dates: start: 2017
  10. ENTYVIO [Suspect]
     Active Substance: VEDOLIZUMAB
     Dosage: 50 MILLIGRAM; 8 DOSAGE FORM, Q8WEEKS; 1 DOSAGE FORM, QD;
     Dates: start: 2017
  11. ASACOL [Suspect]
     Active Substance: MESALAMINE
     Dosage: 12 DOSAGE FORM; 3 GRAM, QD; 4.8 GRAM, QD; 50 MILLIGRAM; 6 DOSAGE FORM, QD; 1 DOSAGE FORM, QD; 8 4.8
     Dates: start: 2016
  12. MESALAMINE [Suspect]
     Active Substance: MESALAMINE
     Dosage: 50 MILLIGRAM; 1 DOSAGE FORM, QD; 8 DOSAGE FORM, Q8WEEKS; 8 DOSAGE FORM; 50 MILLIGRAM; 4.8 MILLIGRAM,
     Dates: start: 2016
  13. MESALAMINE [Suspect]
     Active Substance: MESALAMINE
     Dosage: UNK UNK, QD; 8 DOSAGE FORM, Q8WEEKS; 3 DOSAGE FORM, BID; 4.8 GRAM, QD; 2.4 GRAM, QD; 6 DOSAGE FORM,
     Dates: start: 2016
  14. METFORMIN [Suspect]
     Active Substance: METFORMIN HYDROCHLORIDE
  15. OMEPRAZOLE [Suspect]
     Active Substance: OMEPRAZOLE
  16. DAPAGLIFLOZIN [Suspect]
     Active Substance: DAPAGLIFLOZIN
  17. FELODIPINE [Suspect]
     Active Substance: FELODIPINE
     Dosage: 3 MILLIGRAM; 5 MILLIGRAM, QD
     Route: 048
  18. RAMIPRIL [Concomitant]
     Active Substance: RAMIPRIL
  19. RIVAROXABAN [Concomitant]
     Active Substance: RIVAROXABAN
  20. ESOMEPRAZOLE [Suspect]
     Active Substance: ESOMEPRAZOLE
  21. NEXIUM 24HR [Suspect]
     Active Substance: ESOMEPRAZOLE MAGNESIUM
  22. ROSUVASTATIN [Suspect]
     Active Substance: ROSUVASTATIN
  23. METFORMIN [Suspect]
     Active Substance: METFORMIN HYDROCHLORIDE
  24. CRESTOR [Suspect]
     Active Substance: ROSUVASTATIN CALCIUM
     Dosage: 10 MILLIGRAM
  25. BUDESONIDE [Suspect]
     Active Substance: BUDESONIDE
     Route: 048
  26. DEVICE [Suspect]
     Active Substance: DEVICE
  27. DESOXIMETASONE [Suspect]
     Active Substance: DESOXIMETASONE
  28. REMICADE [Suspect]
     Active Substance: INFLIXIMAB
     Dosage: 5 MILLIGRAM/KILOGRAM
  29. PARA-AMINOSALICYLIC ACID [Suspect]
     Active Substance: AMINOSALICYLIC ACID
  30. ASTRAZENECA COVID-19 VACCINE [Suspect]
     Active Substance: AZD-1222
     Dosage: 1 MILLILITER
     Dates: start: 20210315
  31. OXYCODONE [Suspect]
     Active Substance: OXYCODONE
     Dosage: 5 MILLIGRAM
  32. GABAPENTIN [Suspect]
     Active Substance: GABAPENTIN
     Dosage: 300 MILLIGRAM
  33. FUROSEMIDE [Suspect]
     Active Substance: FUROSEMIDE
     Dosage: 20 MILLIGRAM
  34. ESCITALOPRAM [Suspect]
     Active Substance: ESCITALOPRAM OXALATE
     Dosage: 10 MILLIGRAM
  35. EPINEPHRINE [Suspect]
     Active Substance: EPINEPHRINE
  36. ALBENDAZOLE [Suspect]
     Active Substance: ALBENDAZOLE
     Dates: start: 2017
  37. SULFASALAZINE [Suspect]
     Active Substance: SULFASALAZINE
     Dates: start: 2009, end: 2017
  38. AMINOSALICYLIC ACID [Suspect]
     Active Substance: AMINOSALICYLIC ACID
     Dates: start: 2017
  39. HYDROCORTISONE ACETATE [Suspect]
     Active Substance: HYDROCORTISONE ACETATE
  40. INFLIXIMAB [Suspect]
     Active Substance: INFLIXIMAB
     Dosage: 5 MILLIGRAM/KILOGRAM, Q8WEEKS; 7 MILLIGRAM/KILOGRAM, Q8WEEKS; Q6WEEKS; Q2WEEKS;
     Dates: start: 2017
  41. BUDESONIDE [Suspect]
     Active Substance: BUDESONIDE
     Dosage: Q8WEEKS; 8 DOSAGE FORM, Q8WEEKS
     Dates: start: 2007

REACTIONS (54)
  - Abdominal discomfort [Unknown]
  - Colitis ulcerative [Unknown]
  - Condition aggravated [Unknown]
  - Confusional state [Unknown]
  - Deep vein thrombosis [Unknown]
  - Depression [Unknown]
  - Dysgeusia [Unknown]
  - Eczema [Unknown]
  - Fatigue [Unknown]
  - Frequent bowel movements [Unknown]
  - Gingival pain [Unknown]
  - Accidental overdose [Unknown]
  - Haematochezia [Unknown]
  - Headache [Unknown]
  - Hypopnoea [Unknown]
  - Impaired work ability [Unknown]
  - Inappropriate schedule of product administration [Unknown]
  - Intentional product use issue [Unknown]
  - Loss of personal independence in daily activities [Unknown]
  - Medication error [Unknown]
  - Migraine [Unknown]
  - Nightmare [Unknown]
  - Arthritis [Unknown]
  - Off label use [Unknown]
  - Pain [Unknown]
  - Pain in extremity [Unknown]
  - Palpitations [Unknown]
  - Loss of consciousness [Unknown]
  - Pulmonary embolism [Unknown]
  - Pyrexia [Unknown]
  - Rash [Unknown]
  - Rectal haemorrhage [Unknown]
  - Rhinitis [Unknown]
  - Burns second degree [Unknown]
  - Somnolence [Unknown]
  - Stress [Unknown]
  - Swollen tongue [Unknown]
  - Systemic lupus erythematosus [Unknown]
  - Tinnitus [Unknown]
  - Tubulointerstitial nephritis [Unknown]
  - Vertigo [Unknown]
  - Weight decreased [Unknown]
  - Drug ineffective [Unknown]
  - Bronchiectasis [Unknown]
  - Alcohol poisoning [Unknown]
  - Adverse drug reaction [Unknown]
  - Impaired quality of life [Unknown]
  - Steroid dependence [Unknown]
  - Off label use [Unknown]
  - Product use in unapproved indication [Unknown]
  - COVID-19 [Unknown]
  - Cardiac murmur [Unknown]
  - Catarrh [Unknown]
  - Cerebrovascular accident [Unknown]
